FAERS Safety Report 9578950 (Version 1)
Quarter: 2013Q4

REPORT INFORMATION
  Report Type: Spontaneous
  Country: US (occurrence: US)
  Receive Date: 20131001
  Receipt Date: 20131001
  Transmission Date: 20140711
  Serious: No
  Sender: FDA-Public Use
  Company Number: US-AMGEN-USASP2013015516

PATIENT
  Age: 15 Year
  Sex: Male
  Weight: 83 kg

DRUGS (12)
  1. ENBREL [Suspect]
     Indication: PRODUCT USED FOR UNKNOWN INDICATION
     Dosage: 50 MG, QWK
     Route: 058
  2. CYMBALTA [Concomitant]
     Dosage: 20 MG, UNK
  3. METHOTREXATE [Concomitant]
     Dosage: 2.5 MG, UNK
  4. BENADRYL                           /00000402/ [Concomitant]
     Dosage: 25 MG, UNK
  5. FLEXERIL                           /00428402/ [Concomitant]
     Dosage: 5 MG, UNK
  6. MULTIVITAMINS, PLAIN [Concomitant]
     Dosage: UNK
  7. FOLIC ACID [Concomitant]
     Dosage: UNK
  8. ETODOLAC [Concomitant]
     Dosage: 200 MG, UNK
  9. TYLENOL                            /00020001/ [Concomitant]
     Dosage: 325 MG, UNK
  10. MELATONIN [Concomitant]
     Dosage: 1 MG, UNK
  11. UREA C [Concomitant]
     Dosage: 10 %, UNK
  12. VYVANSE [Concomitant]
     Dosage: 20 MG, UNK

REACTIONS (2)
  - Psoriatic arthropathy [Unknown]
  - Viral infection [Unknown]
